FAERS Safety Report 20308999 (Version 2)
Quarter: 2022Q3

REPORT INFORMATION
  Report Type: Spontaneous
  Country: CA (occurrence: CA)
  Receive Date: 20220107
  Receipt Date: 20220930
  Transmission Date: 20221026
  Serious: Yes (Congenital Anomaly, Other)
  Sender: FDA-Public Use
  Company Number: CA-GLAXOSMITHKLINE-CACH2021GSK092927

PATIENT

DRUGS (5)
  1. IBUPROFEN [Suspect]
     Active Substance: IBUPROFEN
     Indication: Patent ductus arteriosus
     Dosage: 400 MG, QID
     Route: 064
  2. INDOMETHACIN [Suspect]
     Active Substance: INDOMETHACIN
     Indication: Patent ductus arteriosus
     Dosage: 100 MG, SINGLE LOADING DOSE
     Route: 064
  3. INDOMETHACIN [Suspect]
     Active Substance: INDOMETHACIN
     Dosage: 100 MG, MAINTENANCE DOSE PER DAY
     Route: 064
  4. INDOMETHACIN [Suspect]
     Active Substance: INDOMETHACIN
     Dosage: 75 MG, QD
     Route: 064
  5. INDOMETHACIN [Suspect]
     Active Substance: INDOMETHACIN
     Dosage: 50 MG, QD
     Route: 064

REACTIONS (3)
  - Foetal exposure during pregnancy [Unknown]
  - Ductus arteriosus premature closure [Recovered/Resolved]
  - Ebstein^s anomaly [Unknown]
